FAERS Safety Report 5872076-6 (Version None)
Quarter: 2008Q3

REPORT INFORMATION
  Report Type: 
  Country: None (occurrence: None)
  Receive Date: 20080905
  Receipt Date: 20080828
  Transmission Date: 20090109
  Serious: Yes (Death)
  Sender: FDA-Public Use
  Company Number: A0741007A

PATIENT
  Age: 52 Year
  Sex: Female
  Weight: 76.6 kg

DRUGS (15)
  1. TYKERB [Suspect]
     Indication: DRUG USE FOR UNKNOWN INDICATION
     Dosage: 4TAB PER DAY
     Route: 048
     Dates: start: 20080501
  2. XELODA [Suspect]
     Indication: DRUG USE FOR UNKNOWN INDICATION
  3. GLUCOVANCE [Concomitant]
     Dosage: 1TAB TWICE PER DAY
     Route: 048
  4. LIPITOR [Concomitant]
     Dosage: 20MG PER DAY
     Route: 048
  5. CALTRATE [Concomitant]
  6. ONE-A-DAY [Concomitant]
  7. CLARITIN [Concomitant]
     Dosage: 10MG AS REQUIRED
     Route: 048
  8. ACTOS [Concomitant]
     Dosage: 45MG PER DAY
     Route: 048
  9. PEPCID AC [Concomitant]
     Dosage: 20MG TWICE PER DAY
     Route: 048
  10. IRON [Concomitant]
     Dosage: 1TAB PER DAY
     Route: 048
  11. ANZEMET [Concomitant]
     Dosage: 1TAB AS REQUIRED
     Route: 048
  12. COMPAZINE [Concomitant]
     Dosage: 10MG AS REQUIRED
     Route: 048
  13. LIDOCAINE [Concomitant]
     Route: 062
  14. LASIX [Concomitant]
     Dosage: 20MG PER DAY
     Route: 048
  15. ROCEPHIN [Concomitant]

REACTIONS (5)
  - ABDOMINAL DISCOMFORT [None]
  - ERYTHEMA [None]
  - MALIGNANT NEOPLASM PROGRESSION [None]
  - OEDEMA PERIPHERAL [None]
  - SWELLING FACE [None]
